FAERS Safety Report 4844860-9 (Version None)
Quarter: 2005Q4

REPORT INFORMATION
  Report Type: 
  Country: None (occurrence: None)
  Receive Date: 20051128
  Receipt Date: 20051114
  Transmission Date: 20060501
  Serious: Yes (Other)
  Sender: FDA-Public Use
  Company Number: USA0510111120

PATIENT
  Age: 8 Year
  Sex: Male
  Weight: 20 kg

DRUGS (1)
  1. STRATTERA [Suspect]
     Indication: PSYCHOMOTOR HYPERACTIVITY
     Dosage: 18 MCG
     Dates: start: 20030401, end: 20050101

REACTIONS (2)
  - RHABDOMYOLYSIS [None]
  - TEARFULNESS [None]
